FAERS Safety Report 8538007-5 (Version None)
Quarter: 2012Q3

REPORT INFORMATION
  Report Type: 
  Country: None (occurrence: None)
  Receive Date: 20120725
  Receipt Date: 20120719
  Transmission Date: 20120928
  Serious: No
  Sender: FDA-Public Use
  Company Number: US-PFIZER INC-2012177586

PATIENT

DRUGS (1)
  1. CHANTIX [Suspect]
     Dosage: UNK

REACTIONS (6)
  - ABNORMAL DREAMS [None]
  - DRY MOUTH [None]
  - NAUSEA [None]
  - CONSTIPATION [None]
  - MOOD ALTERED [None]
  - DIZZINESS [None]
